FAERS Safety Report 8115784-9 (Version None)
Quarter: 2012Q1

REPORT INFORMATION
  Report Type: 
  Country: None (occurrence: None)
  Receive Date: 20120206
  Receipt Date: 20120130
  Transmission Date: 20120608
  Serious: Yes (Hospitalization, Other)
  Sender: FDA-Public Use
  Company Number: BR-ROCHE-1035288

PATIENT
  Sex: Female
  Weight: 66 kg

DRUGS (3)
  1. HYDROXYCHLOROQUINE SULFATE [Concomitant]
  2. LEVOTHYROXINE SODIUM [Concomitant]
  3. MABTHERA [Suspect]
     Indication: PRODUCT USED FOR UNKNOWN INDICATION
     Route: 042
     Dates: start: 20101201, end: 20111219

REACTIONS (3)
  - PLEURISY [None]
  - GASTROINTESTINAL DISORDER [None]
  - INFUSION RELATED REACTION [None]
